FAERS Safety Report 16764262 (Version 1)
Quarter: 2019Q3

REPORT INFORMATION
  Report Type: Spontaneous
  Country: US (occurrence: US)
  Receive Date: 20190712
  Receipt Date: 20190712
  Transmission Date: 20191005
  Serious: Yes (Life-Threatening)
  Sender: FDA-Public Use
  Company Number: None

PATIENT
  Age: 58 Year
  Sex: Female
  Weight: 44.91 kg

DRUGS (2)
  1. PROXIL (PROZAC) [Concomitant]
  2. OLANZAPINE. [Suspect]
     Active Substance: OLANZAPINE
     Indication: SCHIZOPHRENIA
     Dosage: ?          QUANTITY:10 MG MILLIGRAM(S);?
     Route: 048

REACTIONS (5)
  - Somnolence [None]
  - Vertigo [None]
  - Muscular weakness [None]
  - Salivary hypersecretion [None]
  - Foaming at mouth [None]

NARRATIVE: CASE EVENT DATE: 20151217
